FAERS Safety Report 4915091-9 (Version None)
Quarter: 2006Q1

REPORT INFORMATION
  Report Type: 
  Country: None (occurrence: None)
  Receive Date: 20060217
  Receipt Date: 20060207
  Transmission Date: 20060701
  Serious: Yes (Other)
  Sender: FDA-Public Use
  Company Number: PHNU2006DE00848

PATIENT
  Age: 70 Year
  Sex: Female
  Weight: 63 kg

DRUGS (2)
  1. EMSELEX EXTENDED RELEASE [Suspect]
  2. MARCUMAR [Concomitant]

REACTIONS (1)
  - SINUS TACHYCARDIA [None]
